FAERS Safety Report 6563275-9 (Version None)
Quarter: 2010Q1

REPORT INFORMATION
  Report Type: 
  Country: None (occurrence: None)
  Receive Date: 20100130
  Receipt Date: 20091202
  Transmission Date: 20100710
  Serious: No
  Sender: FDA-Public Use
  Company Number: US-ABBOTT-09P-163-0612622-00

PATIENT
  Sex: Female
  Weight: 87.168 kg

DRUGS (1)
  1. HUMIRA [Suspect]
     Indication: RHEUMATOID ARTHRITIS
     Route: 058
     Dates: start: 20091102

REACTIONS (4)
  - FEELING HOT [None]
  - INJECTION SITE NODULE [None]
  - INJECTION SITE PAIN [None]
  - MOBILITY DECREASED [None]
